FAERS Safety Report 7310431-8 (Version None)
Quarter: 2011Q1

REPORT INFORMATION
  Report Type: 
  Country: None (occurrence: None)
  Receive Date: 20110224
  Receipt Date: 20100818
  Transmission Date: 20110831
  Serious: No
  Sender: FDA-Public Use
  Company Number: US-BRISTOL-MYERS SQUIBB COMPANY-15245129

PATIENT
  Age: 57 Year
  Sex: Female

DRUGS (3)
  1. METFORMIN HCL [Suspect]
     Dates: start: 20090101
  2. LANTUS [Suspect]
     Indication: TYPE 1 DIABETES MELLITUS
     Dosage: 1 DF= 20UNITS AUG 2010: 50 UNITS
     Dates: start: 20100730
  3. DIABETA [Suspect]
     Dates: start: 20080101

REACTIONS (1)
  - BLOOD GLUCOSE INCREASED [None]
